FAERS Safety Report 25044112 (Version 1)
Quarter: 2025Q1

REPORT INFORMATION
  Report Type: Spontaneous
  Country: JP (occurrence: JP)
  Receive Date: 20250306
  Receipt Date: 20250306
  Transmission Date: 20250409
  Serious: Yes (Other)
  Sender: Phathom Pharmaceuticals
  Company Number: JP-PHATHOM PHARMACEUTICALS INC.-2025PHT00456

PATIENT
  Sex: Male

DRUGS (20)
  1. VONOPRAZAN FUMARATE [Suspect]
     Active Substance: VONOPRAZAN FUMARATE
     Indication: Gastric polyps
     Route: 048
  2. ABILIFY [Suspect]
     Active Substance: ARIPIPRAZOLE
     Indication: Physical deconditioning
     Dosage: 3 ML, 3X/DAY
     Route: 048
     Dates: end: 2024
  3. ABILIFY [Suspect]
     Active Substance: ARIPIPRAZOLE
     Dosage: 3 ML, 3X/DAY
     Route: 048
  4. ABILIFY [Suspect]
     Active Substance: ARIPIPRAZOLE
     Indication: Product used for unknown indication
     Route: 065
     Dates: end: 202407
  5. DICLOFENAC DIETHYLAMINE [Suspect]
     Active Substance: DICLOFENAC DIETHYLAMINE
     Indication: Myalgia
  6. DICLOFENAC DIETHYLAMINE [Suspect]
     Active Substance: DICLOFENAC DIETHYLAMINE
     Indication: Arthralgia
  7. DICLOFENAC DIETHYLAMINE [Suspect]
     Active Substance: DICLOFENAC DIETHYLAMINE
     Indication: Pain in extremity
  8. ACOTIAMIDE HYDROCHLORIDE [Concomitant]
     Active Substance: ACOTIAMIDE HYDROCHLORIDE
  9. SOLANAX [Concomitant]
     Active Substance: ALPRAZOLAM
  10. TEGRETOL [Concomitant]
     Active Substance: CARBAMAZEPINE
  11. PYRETHIA [Concomitant]
     Active Substance: PROMETHAZINE HYDROCHLORIDE
  12. BROMAZEPAM [Concomitant]
     Active Substance: BROMAZEPAM
  13. ARTEMETHER [Concomitant]
     Active Substance: ARTEMETHER
  14. CARVEDILOL [Concomitant]
     Active Substance: CARVEDILOL
  15. RAMOSETRON HYDROCHLORIDE [Concomitant]
     Active Substance: RAMOSETRON HYDROCHLORIDE
  16. AMLODIPINE BESYLATE [Concomitant]
     Active Substance: AMLODIPINE BESYLATE
  17. CANDESARTAN CILEXETIL [Concomitant]
     Active Substance: CANDESARTAN CILEXETIL
  18. CILNIDIPINE [Concomitant]
     Active Substance: CILNIDIPINE
  19. URSO [Concomitant]
     Active Substance: URSODIOL
  20. ASENAPINE MALEATE [Concomitant]
     Active Substance: ASENAPINE MALEATE

REACTIONS (12)
  - Depressed level of consciousness [Unknown]
  - Peripheral swelling [Unknown]
  - Pain in extremity [Unknown]
  - Gastric polyps [Unknown]
  - Abdominal pain upper [Unknown]
  - Arthralgia [Unknown]
  - Myalgia [Unknown]
  - Palpitations [Unknown]
  - Glycosylated haemoglobin increased [Unknown]
  - Blood glucose increased [Unknown]
  - Drug interaction [Unknown]
  - Off label use [Unknown]

NARRATIVE: CASE EVENT DATE: 20240701
